FAERS Safety Report 8820089 (Version 2)
Quarter: 2013Q4

REPORT INFORMATION
  Report Type: Spontaneous
  Country: US (occurrence: US)
  Receive Date: 20121001
  Receipt Date: 20131101
  Transmission Date: 20140711
  Serious: No
  Sender: FDA-Public Use
  Company Number: US-009507513-1208USA009341

PATIENT
  Age: 59 Year
  Sex: Female

DRUGS (2)
  1. PEPCID AC [Suspect]
     Indication: GASTROOESOPHAGEAL REFLUX DISEASE
     Dosage: UNK
     Dates: start: 201207
  2. ALLEGRA [Suspect]
     Indication: PHARYNGITIS
     Dosage: 180 MG, QD
     Dates: start: 201207

REACTIONS (3)
  - Therapeutic response unexpected [Unknown]
  - Abdominal pain [Unknown]
  - Off label use [Unknown]
